FAERS Safety Report 11497885 (Version 1)
Quarter: 2015Q3

REPORT INFORMATION
  Report Type: Spontaneous
  Country: AT (occurrence: AT)
  Receive Date: 20150911
  Receipt Date: 20150911
  Transmission Date: 20151125
  Serious: Yes (Other)
  Sender: FDA-Public Use
  Company Number: PHHY2015AT109862

PATIENT
  Age: 59 Year
  Sex: Male

DRUGS (6)
  1. HYDROXYUREA. [Suspect]
     Active Substance: HYDROXYUREA
     Indication: SYSTEMIC MASTOCYTOSIS
  2. AZACITIDINE. [Suspect]
     Active Substance: AZACITIDINE
     Indication: CHRONIC MYELOMONOCYTIC LEUKAEMIA
     Route: 058
     Dates: start: 200912, end: 201105
  3. HYDROXYUREA. [Suspect]
     Active Substance: HYDROXYUREA
     Indication: CHRONIC MYELOMONOCYTIC LEUKAEMIA
     Route: 065
  4. AZACITIDINE. [Suspect]
     Active Substance: AZACITIDINE
     Indication: SYSTEMIC MASTOCYTOSIS
  5. NILOTINIB [Suspect]
     Active Substance: NILOTINIB
     Indication: SYSTEMIC MASTOCYTOSIS
  6. NILOTINIB [Suspect]
     Active Substance: NILOTINIB
     Indication: CHRONIC MYELOMONOCYTIC LEUKAEMIA
     Route: 065

REACTIONS (6)
  - Thrombocytopenia [Recovered/Resolved]
  - Subdural haematoma [Recovered/Resolved]
  - Chronic myelomonocytic leukaemia [Unknown]
  - Systemic mastocytosis [Unknown]
  - Therapeutic response decreased [Unknown]
  - Recurrent cancer [Unknown]

NARRATIVE: CASE EVENT DATE: 200911
